FAERS Safety Report 21741740 (Version 1)
Quarter: 2022Q4

REPORT INFORMATION
  Report Type: Spontaneous
  Country: ES (occurrence: ES)
  Receive Date: 20221216
  Receipt Date: 20221216
  Transmission Date: 20230113
  Serious: Yes (Hospitalization)
  Sender: FDA-Public Use
  Company Number: None

PATIENT
  Age: 59 Year
  Sex: Male

DRUGS (11)
  1. IRINOTECAN HYDROCHLORIDE [Suspect]
     Active Substance: IRINOTECAN HYDROCHLORIDE
     Indication: Pancreatic carcinoma
     Dosage: 129 MG, EVERY 21 DAYS
     Route: 042
     Dates: start: 20220929
  2. MASTICAL D UNIDIA [Concomitant]
     Indication: Calcium metabolism disorder
     Dosage: 1 DF (1 TABLET DECOCE)
     Route: 048
     Dates: start: 20221011
  3. OXYCODONE HYDROCHLORIDE [Concomitant]
     Active Substance: OXYCODONE HYDROCHLORIDE
     Indication: Tobacco abuse
     Dosage: 20 MG, 4X/DAY
     Route: 048
     Dates: start: 20221011
  4. PARACETAMOL CINFA [Concomitant]
     Indication: Tobacco abuse
     Dosage: 1 G DECOCE
     Route: 048
     Dates: start: 20220704
  5. PYRIDOXINE HYDROCHLORIDE [Concomitant]
     Active Substance: PYRIDOXINE HYDROCHLORIDE
     Indication: Iron deficiency anaemia
     Dosage: 300 MG
     Route: 048
     Dates: start: 20210825
  6. IBUPROFENO CINFA [Concomitant]
     Indication: Spinal pain
     Dosage: 600 MG, 2X/DAY
     Route: 048
     Dates: start: 20220921, end: 20221120
  7. CHOLECALCIFEROL [Concomitant]
     Active Substance: CHOLECALCIFEROL
     Indication: Vitamin D deficiency
     Dosage: UNK, MONTHLY (25000.0 UI)
     Route: 048
     Dates: start: 20200930
  8. PANCRELIPASE [Concomitant]
     Active Substance: PANCRELIPASE
     Indication: Pancreatic carcinoma
     Dosage: 1 DF DECOMECE
     Route: 048
     Dates: start: 20221011
  9. OMEPRAZOLE [Concomitant]
     Active Substance: OMEPRAZOLE
     Indication: Pancreatic carcinoma
     Dosage: 40 MG A-DE
     Route: 048
     Dates: start: 20200826
  10. NALOXONE HYDROCHLORIDE\OXYCODONE HYDROCHLORIDE [Concomitant]
     Active Substance: NALOXONE HYDROCHLORIDE\OXYCODONE HYDROCHLORIDE
     Indication: Tobacco abuse
     Dosage: 5 MG, 2X/DAY
     Route: 048
     Dates: start: 20221011
  11. NALOXONE HYDROCHLORIDE\OXYCODONE HYDROCHLORIDE [Concomitant]
     Active Substance: NALOXONE HYDROCHLORIDE\OXYCODONE HYDROCHLORIDE
     Indication: Iron deficiency anaemia
     Dosage: 40 MG, 2X/DAY
     Route: 048
     Dates: start: 20220912

REACTIONS (2)
  - Hypocalcaemia [Recovered/Resolved]
  - Hypophosphataemia [Recovered/Resolved]

NARRATIVE: CASE EVENT DATE: 20221121
